FAERS Safety Report 4308749-6 (Version None)
Quarter: 2004Q1

REPORT INFORMATION
  Report Type: 
  Country: None (occurrence: None)
  Receive Date: 20040227
  Receipt Date: 20040218
  Transmission Date: 20041129
  Serious: Yes (Death)
  Sender: FDA-Public Use
  Company Number: US-JNJFOC-20040100055

PATIENT
  Age: 87 Year
  Sex: Female
  Weight: 47.6277 kg

DRUGS (1)
  1. RISPERDAL [Suspect]
     Dosage: 5 MG,  IN 1 DAY, ORAL
     Route: 048

REACTIONS (1)
  - DEATH [None]
